FAERS Safety Report 8303714-6 (Version None)
Quarter: 2012Q2

REPORT INFORMATION
  Report Type: 
  Country: None (occurrence: None)
  Receive Date: 20120423
  Receipt Date: 20120402
  Transmission Date: 20120825
  Serious: Yes (Other)
  Sender: FDA-Public Use
  Company Number: US-BAYER-2012-022979

PATIENT
  Age: 42 Year
  Sex: Female
  Weight: 112.2 kg

DRUGS (4)
  1. CELEXA [Concomitant]
  2. MULTI-VITAMIN [Concomitant]
  3. MIRENA [Suspect]
     Indication: CONTRACEPTION
     Dosage: 20 ?G, CONT
     Route: 015
     Dates: start: 20120124, end: 20120307
  4. CALCIUM [Concomitant]

REACTIONS (1)
  - RASH GENERALISED [None]
